FAERS Safety Report 4755451-2 (Version None)
Quarter: 2005Q3

REPORT INFORMATION
  Report Type: 
  Country: None (occurrence: None)
  Receive Date: 20050829
  Receipt Date: 20050822
  Transmission Date: 20060218
  Serious: Yes (Hospitalization)
  Sender: FDA-Public Use
  Company Number: GXKR2005GB01496

PATIENT
  Age: 43 Year
  Sex: Male

DRUGS (7)
  1. FLUOXETINE [Suspect]
     Indication: MEDICATION ERROR
     Dosage: 600 MG, ORAL
     Route: 048
  2. ACETYLSALICYLIC ACID SRT [Suspect]
     Indication: MEDICATION ERROR
     Dosage: 7.5 G,
  3. CITALOPRAM (NGX) (CITALOPRAM) [Suspect]
     Indication: MEDICATION ERROR
     Dosage: 250 MG, ORAL
     Route: 048
  4. FOLIC ACID (NGX) (FOLIC ACID) [Suspect]
  5. AMLODIPINE [Suspect]
     Indication: MEDICATION ERROR
     Dosage: 56 TABLETS OF 10 MG, ORAL
     Route: 048
  6. PARACETAMOL (PARACETAMOL) [Suspect]
     Indication: MEDICATION ERROR
     Dosage: 16 G,
  7. PERINDOPRIL (PERINDOPRIL) [Suspect]
     Indication: MEDICATION ERROR
     Dosage: 120 MG,

REACTIONS (11)
  - BASE EXCESS INCREASED [None]
  - GLASGOW COMA SCALE ABNORMAL [None]
  - HAEMODYNAMIC INSTABILITY [None]
  - HYPOKALAEMIA [None]
  - HYPOTENSION [None]
  - INTENTIONAL MISUSE [None]
  - METABOLIC ACIDOSIS [None]
  - MULTIPLE DRUG OVERDOSE [None]
  - RENAL FAILURE [None]
  - THERAPY NON-RESPONDER [None]
  - URINARY RETENTION [None]
